FAERS Safety Report 21789307 (Version 1)
Quarter: 2022Q4

REPORT INFORMATION
  Report Type: Spontaneous
  Country: US (occurrence: US)
  Receive Date: 20221228
  Receipt Date: 20221228
  Transmission Date: 20230112
  Serious: No
  Sender: FDA-Public Use
  Company Number: US-PFIZER INC-PV202200131379

PATIENT
  Sex: Female

DRUGS (4)
  1. RIFABUTIN [Suspect]
     Active Substance: RIFABUTIN
     Indication: Mycobacterium avium complex infection
     Dosage: UNK
  2. RIFABUTIN [Suspect]
     Active Substance: RIFABUTIN
     Indication: Bronchiectasis
  3. ETHAMBUTOL [Concomitant]
     Active Substance: ETHAMBUTOL HYDROCHLORIDE
     Dosage: UNK
  4. ARIKAYCE [Concomitant]
     Active Substance: AMIKACIN
     Dosage: UNK

REACTIONS (1)
  - Disease recurrence [Unknown]
